FAERS Safety Report 4362275-7 (Version None)
Quarter: 2004Q2

REPORT INFORMATION
  Report Type: 
  Country: None (occurrence: None)
  Receive Date: 20040518
  Receipt Date: 20040510
  Transmission Date: 20050107
  Serious: Yes (Other)
  Sender: FDA-Public Use
  Company Number: 200411464BCC

PATIENT
  Age: 79 Year
  Sex: Male
  Weight: 72.5755 kg

DRUGS (8)
  1. NEO SYNEPHRINE NASAL SPRAY [Suspect]
     Indication: NASAL CONGESTION
     Dosage: NASAL
     Route: 045
     Dates: start: 20040320, end: 20040321
  2. COZAAR [Concomitant]
  3. AMARYL [Concomitant]
  4. FUROSEMIDE [Concomitant]
  5. PLAVIX [Concomitant]
  6. ALLOPURINOL [Concomitant]
  7. CIPRO [Concomitant]
  8. MECLIZINE [Concomitant]

REACTIONS (2)
  - OROPHARYNGEAL SWELLING [None]
  - THROAT IRRITATION [None]
